FAERS Safety Report 21792732 (Version 3)
Quarter: 2023Q2

REPORT INFORMATION
  Report Type: Report from Study
  Country: AR (occurrence: AR)
  Receive Date: 20221229
  Receipt Date: 20230615
  Transmission Date: 20230722
  Serious: Yes (Other)
  Sender: FDA-Public Use
  Company Number: AR-002147023-NVSC2021AR184503

PATIENT
  Age: 63 Year
  Sex: Female

DRUGS (2)
  1. COSENTYX [Suspect]
     Active Substance: SECUKINUMAB
     Indication: Psoriasis
     Dosage: 300 MG, QMO
     Route: 058
     Dates: start: 20210722
  2. COSENTYX [Suspect]
     Active Substance: SECUKINUMAB
     Dosage: 300 MG, QMO
     Route: 058
     Dates: start: 20210727

REACTIONS (10)
  - Cataract [Unknown]
  - Choroidal effusion [Recovered/Resolved]
  - Nervous system disorder [Unknown]
  - Skin disorder [Unknown]
  - Pruritus [Not Recovered/Not Resolved]
  - Psoriasis [Unknown]
  - Skin injury [Unknown]
  - Skin exfoliation [Unknown]
  - Nervousness [Unknown]
  - Alopecia [Unknown]

NARRATIVE: CASE EVENT DATE: 20220712
